FAERS Safety Report 8473231-1 (Version None)
Quarter: 2012Q2

REPORT INFORMATION
  Report Type: 
  Country: None (occurrence: None)
  Receive Date: 20120627
  Receipt Date: 20120619
  Transmission Date: 20120825
  Serious: Yes (Congenital Anomaly)
  Sender: FDA-Public Use
  Company Number: US-FRI-1000031553

PATIENT
  Sex: Female

DRUGS (1)
  1. CELEXA [Suspect]
     Route: 064

REACTIONS (3)
  - CONGENITAL ANOMALY [None]
  - PULMONARY ARTERY STENOSIS CONGENITAL [None]
  - FALLOT'S TETRALOGY [None]
